FAERS Safety Report 7625983-8 (Version None)
Quarter: 2011Q3

REPORT INFORMATION
  Report Type: 
  Country: None (occurrence: None)
  Receive Date: 20110721
  Receipt Date: 20110718
  Transmission Date: 20111222
  Serious: Yes (Life-Threatening)
  Sender: FDA-Public Use
  Company Number: IT-CELGENEUS-083-21880-11070270

PATIENT
  Sex: Male

DRUGS (6)
  1. OMEPRAZOLE [Concomitant]
     Dosage: 20 MILLIGRAM
     Route: 048
     Dates: start: 20110516, end: 20110531
  2. REVLIMID [Suspect]
     Indication: MULTIPLE MYELOMA
     Dosage: 25 MILLIGRAM
     Route: 048
     Dates: start: 20110516, end: 20110531
  3. TRIMETHOPRIM + SULFAMETOXAZOL [Concomitant]
     Route: 048
     Dates: start: 20110516, end: 20110530
  4. ASPIRIN [Concomitant]
     Dosage: 100 MILLIGRAM
     Route: 048
     Dates: start: 20110514, end: 20110531
  5. DEXAMETHASONE [Concomitant]
     Dosage: 20 MILLIGRAM
     Route: 048
     Dates: start: 20110516, end: 20110530
  6. ACYCLOVIR [Concomitant]
     Dosage: 600 MILLIGRAM
     Route: 048
     Dates: start: 20110516, end: 20110531

REACTIONS (2)
  - PULMONARY EMBOLISM [None]
  - CARDIOPULMONARY FAILURE [None]
